FAERS Safety Report 5717246-2 (Version None)
Quarter: 2008Q2

REPORT INFORMATION
  Report Type: 
  Country: None (occurrence: None)
  Receive Date: 20080423
  Receipt Date: 20080414
  Transmission Date: 20081010
  Serious: Yes (Hospitalization, Other)
  Sender: FDA-Public Use
  Company Number: 08H-163-0314164

PATIENT
  Age: 35 Year
  Sex: Male

DRUGS (3)
  1. EPINEPHRINE [Suspect]
     Indication: ALLERGY TO ARTHROPOD STING
     Dosage: 0.5 ML, 2 TIMES, INTRAMUSCULAR, 1 ML, 2 TIMES, INTRAVENOUS
     Route: 030
  2. EPIPEN [Suspect]
     Indication: ALLERGY TO ARTHROPOD STING
     Dosage: INJECTION
  3. ALBUTEROL [Concomitant]

REACTIONS (3)
  - CARDIOMYOPATHY [None]
  - HYPOKALAEMIA [None]
  - LOSS OF CONSCIOUSNESS [None]
